FAERS Safety Report 21317920 (Version 1)
Quarter: 2022Q3

REPORT INFORMATION
  Report Type: Spontaneous
  Country: US (occurrence: US)
  Receive Date: 20220911
  Receipt Date: 20220911
  Transmission Date: 20221027
  Serious: No
  Sender: FDA-Public Use
  Company Number: US-SA-SAC20220825000879

PATIENT
  Sex: Female
  Weight: 65.77 kg

DRUGS (6)
  1. DUPIXENT [Suspect]
     Active Substance: DUPILUMAB
     Indication: Dermatitis allergic
     Dosage: 300 MG, QOW
     Route: 058
     Dates: start: 20220518
  2. CITALOPRAM [Concomitant]
     Active Substance: CITALOPRAM HYDROBROMIDE
  3. HYDROCHLOROTHIAZIDE\SPIRONOLACTONE [Concomitant]
     Active Substance: HYDROCHLOROTHIAZIDE\SPIRONOLACTONE
  4. TOPIRAMATE [Concomitant]
     Active Substance: TOPIRAMATE
  5. ADVAIR HFA [Concomitant]
     Active Substance: FLUTICASONE PROPIONATE\SALMETEROL XINAFOATE
  6. HEATHER [NORETHISTERONE] [Concomitant]

REACTIONS (6)
  - Skin haemorrhage [Unknown]
  - Pruritus [Unknown]
  - Skin exfoliation [Unknown]
  - Dry skin [Unknown]
  - Condition aggravated [Unknown]
  - Product use in unapproved indication [Unknown]
